FAERS Safety Report 8431078-6 (Version None)
Quarter: 2012Q2

REPORT INFORMATION
  Report Type: 
  Country: None (occurrence: None)
  Receive Date: 20120612
  Receipt Date: 20120607
  Transmission Date: 20120825
  Serious: Yes (Hospitalization, Other)
  Sender: FDA-Public Use
  Company Number: JP-PFIZER INC-2012137424

PATIENT
  Age: 83 Year
  Sex: Female

DRUGS (1)
  1. LYRICA [Suspect]
     Dosage: 75 MG, UNK
     Route: 048

REACTIONS (6)
  - RENAL IMPAIRMENT [None]
  - URINARY RETENTION [None]
  - NAUSEA [None]
  - HEADACHE [None]
  - ANURIA [None]
  - BRADYCARDIA [None]
